FAERS Safety Report 16496324 (Version 4)
Quarter: 2019Q3

REPORT INFORMATION
  Report Type: Report from Study
  Country: KR (occurrence: KR)
  Receive Date: 20190628
  Receipt Date: 20190830
  Transmission Date: 20191004
  Serious: Yes (Hospitalization)
  Sender: FDA-Public Use
  Company Number: KR-B.I. PHARMACEUTICALS,INC./RIDGEFIELD-2019-BI-028011

PATIENT
  Age: 77 Year
  Sex: Male
  Weight: 47.9 kg

DRUGS (17)
  1. LANSTON [Concomitant]
     Active Substance: LANSOPRAZOLE
     Indication: DYSPEPSIA
  2. GILOTRIF [Suspect]
     Active Substance: AFATINIB
     Route: 048
     Dates: start: 20181210, end: 20190208
  3. MEGACE F [Concomitant]
     Indication: DECREASED APPETITE
     Dosage: STRENGTH: 5 ML/PK; DAILY DOSE 1 PK
     Route: 065
     Dates: start: 20181110
  4. SMECTA [Concomitant]
     Active Substance: MONTMORILLONITE
     Indication: DIARRHOEA
     Dosage: STRENGTH: 20ML/PK; DAILY DOSE: 3PK
     Route: 065
     Dates: start: 20181102
  5. AD-MUC [Concomitant]
     Indication: STOMATITIS
     Route: 065
     Dates: start: 20181203
  6. LOPAINE [Concomitant]
     Route: 065
     Dates: start: 20181213
  7. SMECTA [Concomitant]
     Active Substance: MONTMORILLONITE
     Dosage: 20ML/PK
     Route: 065
     Dates: start: 20181213, end: 20181213
  8. TIROPA [Concomitant]
     Active Substance: TIROPRAMIDE
     Indication: DIARRHOEA
     Route: 065
     Dates: start: 20181213
  9. DICLOMED [Concomitant]
     Indication: STOMATITIS
     Dosage: FORM OF ADMIN: SOLN
     Route: 065
     Dates: start: 20181121
  10. GILOTRIF [Suspect]
     Active Substance: AFATINIB
     Indication: NON-SMALL CELL LUNG CANCER
     Route: 048
     Dates: start: 20181023, end: 20181110
  11. LOPAINE [Concomitant]
     Indication: DIARRHOEA
     Route: 065
     Dates: start: 20181025
  12. VANCOZIN [Concomitant]
     Indication: DIARRHOEA
     Route: 065
     Dates: start: 20181210
  13. GILOTRIF [Suspect]
     Active Substance: AFATINIB
     Route: 048
     Dates: start: 20181113, end: 20181130
  14. KEPPRA [Concomitant]
     Active Substance: LEVETIRACETAM
     Indication: BRAIN NEOPLASM
     Route: 065
     Dates: start: 20181004
  15. LANSTON [Concomitant]
     Active Substance: LANSOPRAZOLE
     Indication: PROPHYLAXIS
     Route: 065
     Dates: start: 20181005
  16. DUPHALAC EASY [Concomitant]
     Indication: DIARRHOEA
     Dosage: STRENGTH: 15ML/PK; DAILY DOSE: 1 PK
     Route: 065
     Dates: start: 20181112
  17. MEGACE F [Concomitant]
     Dosage: 5ML/PK
     Route: 065
     Dates: start: 20181211

REACTIONS (2)
  - Hypophagia [Recovered/Resolved]
  - Hypophagia [Not Recovered/Not Resolved]

NARRATIVE: CASE EVENT DATE: 20181205
